FAERS Safety Report 6279073-X (Version None)
Quarter: 2009Q3

REPORT INFORMATION
  Report Type: 
  Country: None (occurrence: None)
  Receive Date: 20090720
  Receipt Date: 20090720
  Transmission Date: 20100115
  Serious: No
  Sender: FDA-Public Use
  Company Number: None

PATIENT
  Age: 44 Year
  Sex: Male
  Weight: 86.1834 kg

DRUGS (1)
  1. NASAL COLD REMEDY GEL ZICAM [Suspect]
     Indication: NASOPHARYNGITIS
     Dosage: 1 SPRAY IN EACH NOSTRIL 3 TIMES DAILY NASAL
     Route: 045
     Dates: start: 20080301, end: 20090601

REACTIONS (1)
  - ANOSMIA [None]
